FAERS Safety Report 13330137 (Version 4)
Quarter: 2018Q3

REPORT INFORMATION
  Report Type: Spontaneous
  Country: DE (occurrence: DE)
  Receive Date: 20170313
  Receipt Date: 20180808
  Transmission Date: 20181010
  Serious: Yes (Other)
  Sender: FDA-Public Use
  Company Number: PHHY2017DE032598

PATIENT
  Age: 73 Year
  Sex: Male

DRUGS (1)
  1. AMIODARONE [Suspect]
     Active Substance: AMIODARONE
     Indication: ARRHYTHMIA
     Dosage: 200 MG, QD
     Route: 065

REACTIONS (7)
  - Vestibular disorder [Recovered/Resolved]
  - Gait disturbance [Recovered/Resolved]
  - Neurotoxicity [Recovering/Resolving]
  - Demyelinating polyneuropathy [Recovered/Resolved]
  - Ataxia [Recovering/Resolving]
  - Polyneuropathy [Recovered/Resolved]
  - Vertigo [Recovered/Resolved]
